FAERS Safety Report 8803887 (Version 1)
Quarter: 2012Q4

REPORT INFORMATION
  Report Type: 
  Country: US (occurrence: US)
  Receive Date: 20120923
  Receipt Date: 20120923
  Transmission Date: 20130627
  Serious: No
  Sender: FDA-Public Use
  Company Number: US-009507513-1209USA007139

PATIENT
  Age: 60 Year
  Sex: Female

DRUGS (1)
  1. JANUMET [Suspect]

REACTIONS (1)
  - Pain in extremity [Unknown]
